FAERS Safety Report 22890328 (Version 7)
Quarter: 2024Q3

REPORT INFORMATION
  Report Type: Spontaneous
  Country: US (occurrence: US)
  Receive Date: 20230831
  Receipt Date: 20240827
  Transmission Date: 20241017
  Serious: Yes (Disabling, Other)
  Sender: AMGEN
  Company Number: US-HORIZON THERAPEUTICS-HZN-2023-006567

PATIENT
  Age: 59 Year
  Sex: Female
  Weight: 72.599 kg

DRUGS (37)
  1. TEPEZZA [Suspect]
     Active Substance: TEPROTUMUMAB-TRBW
     Indication: Endocrine ophthalmopathy
     Dosage: 820 MILLIGRAM, Q3WK, FIRST INFUSION (500 MG)
     Route: 042
     Dates: start: 20210504
  2. TEPEZZA [Suspect]
     Active Substance: TEPROTUMUMAB-TRBW
     Indication: Graves^ disease
     Dosage: 20 MILLIGRAM/KILOGRAM, Q3WK, SECOND INFUSION
     Route: 042
     Dates: start: 20210525
  3. TEPEZZA [Suspect]
     Active Substance: TEPROTUMUMAB-TRBW
     Dosage: 1640 MILLIGRAM, Q3WK THIRD INFUSION
     Route: 042
     Dates: start: 20210615
  4. TEPEZZA [Suspect]
     Active Substance: TEPROTUMUMAB-TRBW
     Dosage: 1640 MILLIGRAM, Q3WK FOURTH INFUSION
     Route: 042
     Dates: start: 20210706
  5. TEPEZZA [Suspect]
     Active Substance: TEPROTUMUMAB-TRBW
     Dosage: 1640 MILLIGRAM, Q3WK FIFTH INFUSION
     Route: 042
     Dates: start: 20210727
  6. TEPEZZA [Suspect]
     Active Substance: TEPROTUMUMAB-TRBW
     Dosage: 20 MILLIGRAM/KILOGRAM, Q3WK , SIXTH INFUSION
     Route: 042
     Dates: start: 20210817
  7. TEPEZZA [Suspect]
     Active Substance: TEPROTUMUMAB-TRBW
     Dosage: 20 MILLIGRAM/KILOGRAM, Q3WK, SEVENTH INFUSION (500 MG)
     Route: 042
     Dates: start: 20210907
  8. TEPEZZA [Suspect]
     Active Substance: TEPROTUMUMAB-TRBW
     Dosage: 20 MILLIGRAM/KILOGRAM, Q3WK,  EIGHT INFUSION (500 MG X 4 VIALS)
     Route: 042
     Dates: start: 20210928
  9. ALBUTEROL [Concomitant]
     Active Substance: ALBUTEROL
     Indication: Dyspnoea
     Dosage: UNK
  10. FOSAMAX [Concomitant]
     Active Substance: ALENDRONATE SODIUM
     Dosage: 70 MILLIGRAM
     Route: 048
  11. XANAX [Concomitant]
     Active Substance: ALPRAZOLAM
     Dosage: 0.5 MILLIGRAM
     Route: 048
  12. XANAX [Concomitant]
     Active Substance: ALPRAZOLAM
     Dosage: 1 MILLIGRAM, AS NECESSARY
     Route: 048
  13. ASPIRIN [Concomitant]
     Active Substance: ASPIRIN
     Dosage: 81 MILLIGRAM, QD
     Route: 048
  14. VITAMIN B COMPLEX [Concomitant]
     Active Substance: CYANOCOBALAMIN\DEXPANTHENOL\NIACINAMIDE\PYRIDOXINE HYDROCHLORIDE\RIBOFLAVIN 5^-PHOSPHATE SODIUM\THIA
     Dosage: UNK
     Route: 048
  15. BIOTIN [Concomitant]
     Active Substance: BIOTIN
     Dosage: 5000 UNIT, QD
     Route: 048
  16. VITAMIN D3 [Concomitant]
     Active Substance: CHOLECALCIFEROL
     Dosage: UNK UNK, BID, 2,000 UNIT
     Route: 048
  17. COENZYME Q10 [Concomitant]
     Active Substance: DIETARY SUPPLEMENT\UBIDECARENONE
     Dosage: 200 MILLIGRAM, BID
     Route: 048
  18. CARDIZEM [Concomitant]
     Active Substance: DILTIAZEM HYDROCHLORIDE
     Dosage: 180 MILLIGRAM, QD
     Route: 048
  19. PRIMROSE OIL [Concomitant]
     Dosage: UNK, QD (1,000 MG)
     Route: 048
  20. LASIX [Concomitant]
     Active Substance: FUROSEMIDE
     Dosage: (10-20 MG TOTAL), QD
     Route: 048
  21. GINKGO [Concomitant]
     Active Substance: GINKGO
     Dosage: 40 MILLIGRAM, QD
     Route: 048
  22. NORCO [Concomitant]
     Active Substance: ACETAMINOPHEN\HYDROCODONE BITARTRATE
     Dosage: UNK
     Route: 048
  23. ASIAN GINSENG [Concomitant]
     Active Substance: ASIAN GINSENG
     Dosage: UNK, QD
     Route: 048
  24. AVAPRO [Concomitant]
     Active Substance: IRBESARTAN
     Dosage: UNK
     Route: 048
  25. TAPAZOLE [Concomitant]
     Active Substance: METHIMAZOLE
     Dosage: 15 MILLIGRAM, QD
     Route: 048
  26. FISH OIL [Concomitant]
     Active Substance: FISH OIL
     Dosage: UNK
     Route: 048
  27. POTASSIUM CHLORIDE [Concomitant]
     Active Substance: POTASSIUM CHLORIDE
     Dosage: UNK
     Route: 048
  28. VALTREX [Concomitant]
     Active Substance: VALACYCLOVIR HYDROCHLORIDE
     Dosage: 500 MG, BID
     Route: 048
  29. FLAXSEED [Concomitant]
     Active Substance: FLAX SEED
     Dosage: 1000 MILLIGRAM, QD
     Route: 048
  30. METHIMAZOLE [Concomitant]
     Active Substance: METHIMAZOLE
     Dosage: UNK UNK, QD
     Route: 065
  31. IMITREX [Concomitant]
     Active Substance: SUMATRIPTAN SUCCINATE
     Indication: Migraine
     Dosage: 50 MILLIGRAM, Q2H
     Route: 048
  32. IMITREX [Concomitant]
     Active Substance: SUMATRIPTAN SUCCINATE
     Dosage: 100 UNK
     Route: 048
  33. ALBUTEROL SULFATE [Concomitant]
     Active Substance: ALBUTEROL SULFATE
     Dosage: 90 MICROGRAM
  34. ZOFRAN [Concomitant]
     Active Substance: ONDANSETRON HYDROCHLORIDE
     Indication: Nausea
     Dosage: 4 MILLIGRAM, Q8H
     Route: 048
  35. ZOFRAN [Concomitant]
     Active Substance: ONDANSETRON HYDROCHLORIDE
     Indication: Vomiting
  36. CALMOSEPTINE [Concomitant]
     Active Substance: MENTHOL\ZINC OXIDE
     Dosage: UNK
     Route: 061
  37. FLONASE [Concomitant]
     Active Substance: FLUTICASONE PROPIONATE
     Dosage: UNK UNK, QD (50 MICROGRAM)
     Route: 045

REACTIONS (42)
  - Neuropathy peripheral [Unknown]
  - Disability [Not Recovered/Not Resolved]
  - Physical disability [Not Recovered/Not Resolved]
  - Deafness permanent [Not Recovered/Not Resolved]
  - Pulmonary congestion [Unknown]
  - Injury [Not Recovered/Not Resolved]
  - Pain [Not Recovered/Not Resolved]
  - Anxiety [Not Recovered/Not Resolved]
  - Emotional distress [Not Recovered/Not Resolved]
  - Therapeutic product effect incomplete [Unknown]
  - Discomfort [Not Recovered/Not Resolved]
  - Concomitant disease aggravated [Not Recovered/Not Resolved]
  - Impaired quality of life [Not Recovered/Not Resolved]
  - Abdominal pain [Unknown]
  - Abdominal distension [Unknown]
  - Economic problem [Not Recovered/Not Resolved]
  - Fall [Unknown]
  - Skin laceration [Unknown]
  - Product quality issue [Unknown]
  - Paraesthesia [Unknown]
  - Hypoaesthesia [Unknown]
  - Cellulitis [Unknown]
  - Panic attack [Unknown]
  - Exostosis [Unknown]
  - Change of bowel habit [Unknown]
  - Erythema [Unknown]
  - Swelling [Unknown]
  - Hyperglycaemia [Unknown]
  - Fatigue [Unknown]
  - Nausea [Unknown]
  - Tinnitus [Not Recovered/Not Resolved]
  - Diarrhoea [Unknown]
  - Back pain [Unknown]
  - Abdominal mass [Unknown]
  - Pain in extremity [Unknown]
  - Animal bite [Unknown]
  - Peripheral swelling [Unknown]
  - Neck pain [Unknown]
  - Nasal congestion [Unknown]
  - Cough [Unknown]
  - Eye pain [Unknown]
  - Vision blurred [Unknown]

NARRATIVE: CASE EVENT DATE: 20210101
